FAERS Safety Report 5162057-2 (Version None)
Quarter: 2006Q4

REPORT INFORMATION
  Report Type: 
  Country: None (occurrence: None)
  Receive Date: 20061121
  Receipt Date: 20061025
  Transmission Date: 20070319
  Serious: Yes (Hospitalization)
  Sender: FDA-Public Use
  Company Number: A01200609112

PATIENT
  Age: 47 Year
  Sex: Male

DRUGS (6)
  1. ELOXATIN [Suspect]
     Indication: COLORECTAL CANCER METASTATIC
     Dosage: 120 MG Q2W
     Route: 042
     Dates: start: 20060907, end: 20060907
  2. FLUOROURACIL [Concomitant]
  3. CALCIUM FOLINATE [Concomitant]
  4. ONDANSETRON HCL [Concomitant]
  5. DEXAMETHASONE [Concomitant]
  6. METOCLOPRAMIDE [Concomitant]

REACTIONS (1)
  - CEREBROVASCULAR ACCIDENT [None]
